FAERS Safety Report 5248394-1 (Version None)
Quarter: 2007Q1

REPORT INFORMATION
  Report Type: 
  Country: None (occurrence: None)
  Receive Date: 20070222
  Receipt Date: 20070207
  Transmission Date: 20070707
  Serious: Yes (Hospitalization)
  Sender: FDA-Public Use
  Company Number: SPV1-2006-02092

PATIENT
  Age: 73 Year
  Sex: Female
  Weight: 83.9 kg

DRUGS (9)
  1. FOSRENOL [Suspect]
     Indication: HYPERPHOSPHATAEMIA
     Dosage: SEE IMAGE
     Dates: start: 20061111, end: 20061213
  2. AVANDIA [Concomitant]
  3. RENAL CAP [Concomitant]
  4. COUMADIN [Concomitant]
  5. GLIMEPIRIDE [Concomitant]
  6. VITAMIN C /00008001/ (ASCORBIC ACID) [Concomitant]
  7. LIPITOR [Concomitant]
  8. CALCIUM (CALCIUM) [Concomitant]
  9. GLUCOSAMINE (GLUCOSAMINE) [Concomitant]

REACTIONS (2)
  - MUSCLE SPASMS [None]
  - TREMOR [None]
